FAERS Safety Report 9007783 (Version 2)
Quarter: 2013Q2

REPORT INFORMATION
  Report Type: Spontaneous
  Country: US (occurrence: US)
  Receive Date: 20130111
  Receipt Date: 20130407
  Transmission Date: 20140414
  Serious: No
  Sender: FDA-Public Use
  Company Number: US-009507513-1301USA003188

PATIENT
  Sex: Female

DRUGS (3)
  1. EMEND [Suspect]
     Indication: PROPHYLAXIS OF NAUSEA AND VOMITING
     Dosage: UNK
     Route: 048
  2. DEXAMETHASONE [Concomitant]
  3. ALOXI [Concomitant]

REACTIONS (1)
  - Nausea [Unknown]
